FAERS Safety Report 7366804-0 (Version None)
Quarter: 2011Q1

REPORT INFORMATION
  Report Type: 
  Country: None (occurrence: None)
  Receive Date: 20110310
  Receipt Date: 20110301
  Transmission Date: 20110831
  Serious: Yes (Hospitalization)
  Sender: FDA-Public Use
  Company Number: 2011MA002003

PATIENT
  Age: 62 Year
  Sex: Female

DRUGS (5)
  1. VENLAFAXINE HYDROCHLORIDE [Suspect]
     Indication: DEPRESSION
     Dosage: 225 MG; ; PO
     Route: 048
     Dates: start: 20100101, end: 20110120
  2. OMEPRAZOLE [Concomitant]
  3. MIRTAZAPINE [Concomitant]
  4. PREDNISOLONE [Concomitant]
  5. QUETIAPINE [Concomitant]

REACTIONS (1)
  - SEROTONIN SYNDROME [None]
